FAERS Safety Report 8808099 (Version 1)
Quarter: 2012Q4

REPORT INFORMATION
  Report Type: 
  Country: US (occurrence: US)
  Receive Date: 20120925
  Receipt Date: 20120925
  Transmission Date: 20130627
  Serious: No
  Sender: FDA-Public Use
  Company Number: US-COVIDIEN/TYCO HEALTHCARE/MALLINCKRODT-T201200513

PATIENT
  Age: 49 Year
  Sex: Female

DRUGS (2)
  1. KIT FOR THE PREPARATION OF TECHNETIUM (TC-99M) SESTAMIBI INJECTION [Suspect]
     Indication: CARDIAC STRESS TEST
     Dosage: UNK, single
     Dates: start: 20120116, end: 20120116
  2. ULTRA-TECHNEKOW DTE GENERATOR [Suspect]
     Indication: CARDIAC STRESS TEST

REACTIONS (9)
  - Dyspnoea [Recovering/Resolving]
  - Abdominal distension [Recovering/Resolving]
  - Eructation [Recovering/Resolving]
  - Vomiting [Recovered/Resolved]
  - Nausea [Recovered/Resolved]
  - Headache [Recovered/Resolved]
  - Dizziness [Unknown]
  - Asthenia [Unknown]
  - Fatigue [Recovered/Resolved]
